FAERS Safety Report 9277246 (Version 1)
Quarter: 2013Q2

REPORT INFORMATION
  Report Type: Spontaneous
  Country: CH (occurrence: CH)
  Receive Date: 20130508
  Receipt Date: 20130508
  Transmission Date: 20140414
  Serious: Yes (Other)
  Sender: FDA-Public Use
  Company Number: CH-ROCHE-1221082

PATIENT
  Age: 28 Year
  Sex: Female

DRUGS (3)
  1. RIVOTRIL [Suspect]
     Indication: SLEEP DISORDER
     Dosage: 6 DROPS PER DAY
     Route: 048
     Dates: start: 2012
  2. VALERIAN [Suspect]
     Indication: SLEEP DISORDER
     Dosage: A DAY
     Route: 065
  3. SANALEPSI-N [Suspect]
     Indication: SLEEP DISORDER
     Route: 065

REACTIONS (2)
  - Exposure during pregnancy [Unknown]
  - Foetal growth restriction [Unknown]
